FAERS Safety Report 19742590 (Version 1)
Quarter: 2021Q3

REPORT INFORMATION
  Report Type: Spontaneous
  Country: FR (occurrence: FR)
  Receive Date: 20210824
  Receipt Date: 20210824
  Transmission Date: 20211014
  Serious: Yes (Hospitalization)
  Sender: FDA-Public Use
  Company Number: FR-009507513-2108FRA005359

PATIENT
  Age: 49 Year
  Sex: Female

DRUGS (14)
  1. MYAMBUTOL [Suspect]
     Active Substance: ETHAMBUTOL HYDROCHLORIDE
     Indication: TUBERCULOSIS
     Dosage: 1.6 GRAM, QD
     Route: 042
     Dates: start: 20210603, end: 20210728
  2. PIRILENE [Suspect]
     Active Substance: PYRAZINAMIDE
     Indication: TUBERCULOSIS
     Dosage: 1.5 GRAM, QD, COMPRESSED
     Route: 048
     Dates: start: 20210603, end: 20210728
  3. RIFADINE [RIFAMPICIN] [Suspect]
     Active Substance: RIFAMPIN
     Indication: TUBERCULOSIS
     Dosage: 800 MILLIGRAM, QD
     Route: 042
     Dates: start: 20210603, end: 20210728
  4. KEPPRA [Concomitant]
     Active Substance: LEVETIRACETAM
     Dosage: UNKNOWN
     Route: 048
  5. LOVENOX [LEVOFLOXACIN] [Concomitant]
     Active Substance: LEVOFLOXACIN
     Dosage: UNKNOWN
     Route: 058
  6. DIFFU?K [Concomitant]
     Active Substance: POTASSIUM CHLORIDE
     Dosage: UNKNOWN
     Route: 048
  7. MACROGOL STEARATE [Concomitant]
     Active Substance: POLYETHYLENE GLYCOLS
     Dosage: UNKNOWN
     Route: 048
  8. ISENTRESS [Suspect]
     Active Substance: RALTEGRAVIR POTASSIUM
     Indication: HIV INFECTION
     Dosage: 800 MILLIGRAM, QD
     Route: 048
     Dates: start: 20210603
  9. EMTRICITABINE [Suspect]
     Active Substance: EMTRICITABINE
     Dosage: 200 MILLIGRAM, QD
     Route: 048
     Dates: start: 20210603
  10. MIRTAZAPINE. [Concomitant]
     Active Substance: MIRTAZAPINE
     Dosage: UNKNOWN
     Route: 048
  11. PREDNISOLONE. [Concomitant]
     Active Substance: PREDNISOLONE
     Dosage: UNKNOWN
     Route: 048
  12. TENOFOVIR DISOPROXIL FUMARATE. [Suspect]
     Active Substance: TENOFOVIR DISOPROXIL FUMARATE
     Dosage: 245 MILLIGRAM, QD
     Route: 048
     Dates: start: 20210603
  13. ISONIAZIDE [Suspect]
     Active Substance: ISONIAZID
     Indication: TUBERCULOSIS
     Dosage: 300 MILLIGRAM, QD
     Route: 042
     Dates: start: 20210603, end: 20210728
  14. PARACETAMOL [Concomitant]
     Active Substance: ACETAMINOPHEN
     Dosage: UNKNOWN
     Route: 048

REACTIONS (1)
  - Haemolytic anaemia [Not Recovered/Not Resolved]

NARRATIVE: CASE EVENT DATE: 20210618
